FAERS Safety Report 23306558 (Version 2)
Quarter: 2024Q1

REPORT INFORMATION
  Report Type: Spontaneous
  Country: CO (occurrence: CO)
  Receive Date: 20231218
  Receipt Date: 20240125
  Transmission Date: 20240409
  Serious: Yes (Hospitalization, Other)
  Sender: FDA-Public Use
  Company Number: CO-SA-SAC20231214000593

PATIENT
  Age: 75 Year
  Sex: Female

DRUGS (2)
  1. PRALUENT [Suspect]
     Active Substance: ALIROCUMAB
     Indication: Type IIa hyperlipidaemia
     Dosage: UNK UNK, QOW
     Route: 058
  2. PRALUENT [Suspect]
     Active Substance: ALIROCUMAB
     Dosage: 75 MG, QOW
     Route: 058

REACTIONS (4)
  - Asphyxia [Unknown]
  - Thrombophlebitis [Unknown]
  - Hyperglycaemia [Unknown]
  - Anaemia [Unknown]

NARRATIVE: CASE EVENT DATE: 20231201
